FAERS Safety Report 7244672-5 (Version None)
Quarter: 2011Q1

REPORT INFORMATION
  Report Type: 
  Country: None (occurrence: None)
  Receive Date: 20110125
  Receipt Date: 20101213
  Transmission Date: 20110831
  Serious: No
  Sender: FDA-Public Use
  Company Number: US-MYLANLABS-2010S1022740

PATIENT
  Age: 67 Year
  Sex: Female

DRUGS (3)
  1. HYDROCHLOROTHIAZIDE [Concomitant]
     Route: 048
     Dates: start: 20101101
  2. POTASSIUM [Concomitant]
     Route: 048
     Dates: start: 20101101
  3. CLONIDINE [Suspect]
     Indication: BLOOD PRESSURE INCREASED
     Dosage: WEEKLY
     Route: 062
     Dates: start: 20101201

REACTIONS (2)
  - DRUG INEFFECTIVE [None]
  - BLOOD PRESSURE INCREASED [None]
